FAERS Safety Report 10272775 (Version 2)
Quarter: 2014Q3

REPORT INFORMATION
  Report Type: Spontaneous
  Country: US (occurrence: None)
  Receive Date: 20140630
  Receipt Date: 20140717
  Transmission Date: 20150326
  Serious: Yes (Other)
  Sender: FDA-Public Use
  Company Number: 140217

PATIENT
  Age: 55 Year
  Sex: Female
  Weight: 52.62 kg

DRUGS (6)
  1. POTASSIUM CHLORIDE (KCL) EXTENDED RELEASE [Concomitant]
  2. PROPRANOLOL [Concomitant]
     Active Substance: PROPRANOLOL\PROPRANOLOL HYDROCHLORIDE
  3. GOLYTELY [Suspect]
     Active Substance: POLYETHYLENE GLYCOL 3350\POTASSIUM CHLORIDE\SODIUM BICARBONATE\SODIUM CHLORIDE\SODIUM SULFATE ANHYDROUS
     Indication: COLONOSCOPY
     Route: 048
     Dates: start: 20111004, end: 20111004
  4. SPIRONOLACTONE. [Concomitant]
     Active Substance: SPIRONOLACTONE
  5. PYRIDOSTIGIMINE [Concomitant]
  6. KLONOPIN [Concomitant]
     Active Substance: CLONAZEPAM

REACTIONS (13)
  - Paralysis [None]
  - Diarrhoea [None]
  - Weight decreased [None]
  - Unresponsive to stimuli [None]
  - Post procedural complication [None]
  - Shock [None]
  - Plasma cell myeloma [None]
  - Idiopathic neutropenia [None]
  - Hypokalaemia [None]
  - Decreased appetite [None]
  - Leukopenia [None]
  - Quadriplegia [None]
  - Myelodysplastic syndrome [None]

NARRATIVE: CASE EVENT DATE: 20111004
